FAERS Safety Report 5420683-7 (Version None)
Quarter: 2007Q3

REPORT INFORMATION
  Report Type: 
  Country: None (occurrence: None)
  Receive Date: 20070821
  Receipt Date: 20070808
  Transmission Date: 20080115
  Serious: Yes (Hospitalization, Other)
  Sender: FDA-Public Use
  Company Number: US-ELI_LILLY_AND_COMPANY-US200708001780

PATIENT
  Age: 50 Year
  Sex: Female

DRUGS (5)
  1. ZYPREXA [Suspect]
     Dosage: 15 MG, UNK
     Route: 048
  2. ZYPREXA [Suspect]
     Dosage: 360 MG, UNK
     Route: 048
     Dates: start: 20070728
  3. LAMICTAL [Concomitant]
  4. LEXAPRO [Concomitant]
  5. ALCOHOL [Concomitant]

REACTIONS (7)
  - BLOOD CREATINE PHOSPHOKINASE INCREASED [None]
  - DELIRIUM [None]
  - HALLUCINATION [None]
  - OVERDOSE [None]
  - TACHYCARDIA [None]
  - UNRESPONSIVE TO STIMULI [None]
  - WHITE BLOOD CELL COUNT ABNORMAL [None]
